FAERS Safety Report 6692260-1 (Version None)
Quarter: 2010Q2

REPORT INFORMATION
  Report Type: 
  Country: None (occurrence: None)
  Receive Date: 20100422
  Receipt Date: 20100414
  Transmission Date: 20101027
  Serious: Yes (Other)
  Sender: FDA-Public Use
  Company Number: FR-BAXTER-2010BH007442

PATIENT
  Age: 78 Year
  Sex: Male
  Weight: 64 kg

DRUGS (20)
  1. GAMMAGARD LIQUID [Suspect]
     Indication: NEUROPATHY PERIPHERAL
     Route: 042
     Dates: start: 20091123, end: 20091128
  2. GAMMAGARD LIQUID [Suspect]
     Indication: OFF LABEL USE
     Route: 042
     Dates: start: 20091123, end: 20091128
  3. AMLOR [Concomitant]
     Indication: HYPERTENSION
     Route: 048
     Dates: start: 20010101
  4. PLAVIX [Concomitant]
     Indication: PLATELET AGGREGATION INHIBITION
     Route: 048
  5. NAFTIDROFURYL [Concomitant]
     Indication: ARTERITIS OBLITERANS
     Route: 048
  6. INIPOMP [Concomitant]
     Indication: ANTACID THERAPY
     Route: 048
  7. TAMSULOSIN HCL [Concomitant]
     Indication: PROSTATIC ADENOMA
     Route: 048
  8. HYPERIUM [Concomitant]
     Indication: HYPERTENSION
     Route: 048
  9. CALCIDIA [Concomitant]
     Indication: RENAL OSTEODYSTROPHY
     Route: 048
     Dates: start: 20090908
  10. SODIUM BICARBONATE [Concomitant]
     Indication: RENAL FAILURE
     Route: 048
  11. SPECIAFOLDINE [Concomitant]
     Indication: FOLATE DEFICIENCY
     Route: 048
  12. ARANESP [Concomitant]
     Indication: RENAL FAILURE
     Route: 058
  13. OXYCODONE HCL [Concomitant]
     Indication: PAIN
     Route: 048
     Dates: start: 20090925, end: 20091130
  14. PREGABALIN [Concomitant]
     Indication: PAIN
     Route: 048
     Dates: start: 20090925, end: 20091130
  15. DOLIPRANE [Concomitant]
     Indication: PAIN
     Route: 048
     Dates: start: 20090925, end: 20091130
  16. OXYCONTIN [Concomitant]
     Indication: PAIN
     Route: 048
     Dates: start: 20091030
  17. CALCIPARINE [Concomitant]
     Indication: THROMBOSIS PROPHYLAXIS
     Route: 058
     Dates: start: 20091120
  18. NITROUS OXIDE [Concomitant]
     Indication: PAIN
     Route: 055
     Dates: start: 20091029, end: 20091123
  19. OXYGEN [Concomitant]
     Indication: PAIN
     Route: 055
     Dates: start: 20091029, end: 20091123
  20. KAYEXALATE [Concomitant]
     Indication: HYPERKALAEMIA
     Route: 048
     Dates: start: 20091121

REACTIONS (8)
  - ANAEMIA [None]
  - CONFUSIONAL STATE [None]
  - DISORIENTATION [None]
  - HALLUCINATION [None]
  - LEUKOPENIA [None]
  - MENTAL DISORDER [None]
  - PSYCHOMOTOR RETARDATION [None]
  - SEDATION [None]
